FAERS Safety Report 9173593 (Version 2)
Quarter: 2013Q1

REPORT INFORMATION
  Report Type: Spontaneous
  Country: US (occurrence: None)
  Receive Date: 20130211
  Receipt Date: 20130213
  Transmission Date: 20140127
  Serious: Yes (Death)
  Sender: FDA-Public Use
  Company Number: 2013034661

PATIENT
  Age: 69 Year
  Sex: Male

DRUGS (5)
  1. PRIVIGEN (IMMUNE GLOBULIN INTRAVENOUS (HUMAN) 10% LIQUID) [Suspect]
     Indication: HYPOGAMMAGLOBULINAEMIA
     Dosage: 11:50-13:50, INFUSION RATE: 1.66 ML/MIN
     Route: 042
     Dates: start: 20120322, end: 20120322
  2. PRIVIGEN (IMMUNE GLOBULIN INTRAVENOUS (HUMAN) 10% LIQUID) [Suspect]
     Indication: ALLOGENIC BONE MARROW TRANSPLANTATION THERAPY
     Dosage: 11:50-13:50, INFUSION RATE: 1.66 ML/MIN
     Route: 042
     Dates: start: 20120322, end: 20120322
  3. SANDIMMUN (CICLOSPORIN) INFUSION [Concomitant]
  4. FALITHROM (PHENPROCOUMON) [Concomitant]
  5. PREDNISOLONE (PREDNISOLONE) [Concomitant]

REACTIONS (3)
  - Disease progression [None]
  - Mantle cell lymphoma [None]
  - Osteoporosis [None]
